FAERS Safety Report 8025757-2 (Version None)
Quarter: 2012Q1

REPORT INFORMATION
  Report Type: 
  Country: None (occurrence: None)
  Receive Date: 20120105
  Receipt Date: 20110309
  Transmission Date: 20120608
  Serious: No
  Sender: FDA-Public Use
  Company Number: US-ABBOTT-10P-163-0662602-00

PATIENT
  Sex: Female
  Weight: 61.29 kg

DRUGS (5)
  1. LEVOTHYROXINE SODIUM [Suspect]
     Dates: start: 20100801
  2. LEVOTHYROXINE SODIUM [Suspect]
     Dates: end: 20100801
  3. LEVOTHYROXINE SODIUM [Suspect]
     Indication: HYPOTHYROIDISM
     Dates: start: 20010101, end: 20100601
  4. SYNTHROID [Suspect]
     Indication: HYPOTHYROIDISM
     Dates: start: 19900101, end: 20010101
  5. SYNTHROID [Suspect]
     Dates: start: 20100601

REACTIONS (8)
  - VOMITING [None]
  - DIARRHOEA [None]
  - NAUSEA [None]
  - THYROID FUNCTION TEST ABNORMAL [None]
  - DRUG INEFFECTIVE [None]
  - HEADACHE [None]
  - DIZZINESS [None]
  - ALOPECIA [None]
